FAERS Safety Report 4432932-2 (Version None)
Quarter: 2004Q3

REPORT INFORMATION
  Report Type: 
  Country: None (occurrence: None)
  Receive Date: 20040823
  Receipt Date: 20040806
  Transmission Date: 20050211
  Serious: Yes (Hospitalization)
  Sender: FDA-Public Use
  Company Number: 04P-130-0267512-00

PATIENT
  Age: 52 Year
  Sex: Female

DRUGS (3)
  1. ERYTHROMYCIN ETHYLSUCCINATE [Suspect]
     Indication: INFECTIOUS MONONUCLEOSIS
     Dosage: 1 GM, 3 IN 1 D, PER ORAL
     Route: 048
  2. AMOXICILLIN+CLAVUNLANIC ACID [Suspect]
     Indication: INFECTIOUS MONONUCLEOSIS
     Dosage: 3 IN 1 D, PER ORAL
     Route: 048
  3. ACETYLSALICYLIC ACID [Concomitant]

REACTIONS (6)
  - DISCOMFORT [None]
  - HEPATIC FUNCTION ABNORMAL [None]
  - PRURITUS [None]
  - RENAL DISORDER [None]
  - RENAL IMPAIRMENT [None]
  - TOXIC EPIDERMAL NECROLYSIS [None]
